FAERS Safety Report 6875453-X (Version None)
Quarter: 2010Q3

REPORT INFORMATION
  Report Type: 
  Country: None (occurrence: None)
  Receive Date: 20100727
  Receipt Date: 20100713
  Transmission Date: 20110219
  Serious: Yes (Death, Life-Threatening)
  Sender: FDA-Public Use
  Company Number: CN-JNJFOC-20100705039

PATIENT
  Sex: Male

DRUGS (2)
  1. INFLIXIMAB, RECOMBINANT [Suspect]
     Indication: ANKYLOSING SPONDYLITIS
     Dosage: ADMINISTERED AT WEEKS 16, 18 AND 22
  2. FOLIC ACID [Concomitant]
     Dosage: WEEK 0 TO WEEK 22

REACTIONS (2)
  - RESPIRATORY FAILURE [None]
  - SCEDOSPORIUM INFECTION [None]
